FAERS Safety Report 6440724-8 (Version None)
Quarter: 2009Q4

REPORT INFORMATION
  Report Type: 
  Country: None (occurrence: None)
  Receive Date: 20091116
  Receipt Date: 20091106
  Transmission Date: 20100525
  Serious: Yes (Hospitalization)
  Sender: FDA-Public Use
  Company Number: US-BIOGENIDEC-2009BI036511

PATIENT
  Age: 77 Year
  Sex: Male

DRUGS (2)
  1. AVONEX [Suspect]
     Indication: MULTIPLE SCLEROSIS
     Route: 030
     Dates: start: 20051101, end: 20090814
  2. AVONEX [Suspect]
     Route: 030

REACTIONS (3)
  - FAECES DISCOLOURED [None]
  - PNEUMONIA [None]
  - PULMONARY THROMBOSIS [None]
